FAERS Safety Report 16941328 (Version 1)
Quarter: 2019Q4

REPORT INFORMATION
  Report Type: Spontaneous
  Country: US (occurrence: US)
  Receive Date: 20190829
  Receipt Date: 20190829
  Transmission Date: 20200122
  Serious: No
  Sender: FDA-Public Use
  Company Number: None

PATIENT
  Age: 65 Year
  Sex: Male

DRUGS (1)
  1. EPCLUSA [Suspect]
     Active Substance: SOFOSBUVIR\VELPATASVIR
     Indication: CHRONIC HEPATITIS C
     Dosage: ?          OTHER DOSE:TAKE 1 TABLET BY M;?
     Route: 048
     Dates: start: 201908

REACTIONS (3)
  - Dizziness [None]
  - Joint injury [None]
  - Fall [None]

NARRATIVE: CASE EVENT DATE: 20190829
